FAERS Safety Report 17408744 (Version 3)
Quarter: 2020Q1

REPORT INFORMATION
  Report Type: Other
  Country: DE (occurrence: GB)
  Receive Date: 20200212
  Receipt Date: 20200320
  Transmission Date: 20200409
  Serious: Yes (Other)
  Sender: FDA-Public Use
  Company Number: GB-RECORDATI RARE DISEASES-2080187

PATIENT
  Age: 3 Year
  Sex: Female

DRUGS (3)
  1. CYSTADANE [Suspect]
     Active Substance: BETAINE
  2. PYRIDOXINE [Concomitant]
     Active Substance: PYRIDOXINE
  3. CYSTADANE [Suspect]
     Active Substance: BETAINE
     Indication: HOMOCYSTINURIA

REACTIONS (12)
  - Brain oedema [Recovered/Resolved]
  - Vomiting [Recovered/Resolved]
  - Upper respiratory tract infection [Unknown]
  - Hypermethioninaemia [Recovered/Resolved]
  - VIth nerve paralysis [Recovered/Resolved]
  - Papilloedema [Recovered/Resolved]
  - Intellectual disability [Unknown]
  - Overdose [Unknown]
  - Headache [Recovered/Resolved]
  - Off label use [Unknown]
  - Intracranial pressure increased [Recovered/Resolved]
  - Inappropriate schedule of product administration [Unknown]
